FAERS Safety Report 7889531-X (Version None)
Quarter: 2011Q4

REPORT INFORMATION
  Report Type: 
  Country: None (occurrence: None)
  Receive Date: 20111103
  Receipt Date: 20100913
  Transmission Date: 20120403
  Serious: No
  Sender: FDA-Public Use
  Company Number: US-BRISTOL-MYERS SQUIBB COMPANY-15283641

PATIENT
  Sex: Female

DRUGS (1)
  1. KENALOG-40 [Suspect]
     Dosage: 1DF-3INJ

REACTIONS (3)
  - DRY SKIN [None]
  - PALPITATIONS [None]
  - HAIR GROWTH ABNORMAL [None]
